FAERS Safety Report 8281995-5 (Version None)
Quarter: 2012Q2

REPORT INFORMATION
  Report Type: 
  Country: None (occurrence: None)
  Receive Date: 20120413
  Receipt Date: 20120409
  Transmission Date: 20120825
  Serious: Yes (Hospitalization)
  Sender: FDA-Public Use
  Company Number: US-ABBOTT-12P-163-0923653-00

PATIENT
  Sex: Male
  Weight: 102.15 kg

DRUGS (4)
  1. CITALOPRAM HYDROBROMIDE [Concomitant]
     Indication: ANXIETY
  2. METOPROLOL TARTRATE [Concomitant]
     Indication: HYPERTENSION
  3. HUMIRA [Suspect]
     Indication: CROHN'S DISEASE
     Dates: start: 20110101, end: 20120201
  4. PREDNISONE [Concomitant]
     Indication: CROHN'S DISEASE

REACTIONS (4)
  - FATIGUE [None]
  - ABDOMINAL PAIN [None]
  - DECREASED APPETITE [None]
  - DIARRHOEA [None]
